FAERS Safety Report 9819260 (Version 2)
Quarter: 2014Q1

REPORT INFORMATION
  Report Type: Report from Study
  Country: AU (occurrence: AU)
  Receive Date: 20140115
  Receipt Date: 20140127
  Transmission Date: 20141002
  Serious: Yes (Hospitalization, Other)
  Sender: FDA-Public Use
  Company Number: AU-SA-2014SA002456

PATIENT
  Sex: Female

DRUGS (11)
  1. LANTUS [Suspect]
     Indication: PRODUCT USED FOR UNKNOWN INDICATION
     Route: 058
     Dates: start: 20070101
  2. XALATAN [Concomitant]
  3. BICOR [Concomitant]
  4. TEGRETOL [Concomitant]
  5. GABAPENTIN [Concomitant]
  6. LIPITOR [Concomitant]
  7. EZETROL [Concomitant]
  8. PLAVIX [Concomitant]
  9. ZOLOFT [Concomitant]
  10. PARIET [Concomitant]
  11. NOVORAPID [Concomitant]

REACTIONS (8)
  - Fall [Unknown]
  - Upper limb fracture [Not Recovered/Not Resolved]
  - Upper limb fracture [Not Recovered/Not Resolved]
  - Hot flush [Not Recovered/Not Resolved]
  - Blood glucose increased [Not Recovered/Not Resolved]
  - Diverticulitis [Not Recovered/Not Resolved]
  - Urinary tract infection [Not Recovered/Not Resolved]
  - Gout [Not Recovered/Not Resolved]
